FAERS Safety Report 11095071 (Version 3)
Quarter: 2016Q4

REPORT INFORMATION
  Report Type: Spontaneous
  Country: US (occurrence: US)
  Receive Date: 20150506
  Receipt Date: 20161005
  Transmission Date: 20170206
  Serious: Yes (Hospitalization)
  Sender: FDA-Public Use
  Company Number: US-SA-2014SA056948

PATIENT
  Age: 64 Year
  Sex: Male

DRUGS (3)
  1. APIDRA SOLOSTAR [Suspect]
     Active Substance: INSULIN GLULISINE
     Indication: TYPE 1 DIABETES MELLITUS
     Dosage: DOSE OF 4-6 UNITS 3 TID WITH 8-10 IF BLOOD SUGAR UP
     Route: 058
  2. SOLOSTAR [Concomitant]
     Active Substance: DEVICE
     Indication: TYPE 1 DIABETES MELLITUS
     Route: 058
  3. APIDRA SOLOSTAR [Suspect]
     Active Substance: INSULIN GLULISINE
     Indication: TYPE 1 DIABETES MELLITUS
     Dosage: DOSE AND FREQUENCY: VARIES/CARB COUNTING
     Route: 058

REACTIONS (16)
  - Transient ischaemic attack [Unknown]
  - Incorrect product storage [Unknown]
  - Injection site mass [Recovered/Resolved]
  - Impaired gastric emptying [Unknown]
  - Peptic ulcer [Unknown]
  - Amnesia [Unknown]
  - Pneumonia [Unknown]
  - Drug effect decreased [Unknown]
  - Polydipsia [Recovered/Resolved]
  - Drug dose omission [Unknown]
  - Hernia repair [Unknown]
  - Drug ineffective [Unknown]
  - Blood testosterone decreased [Unknown]
  - Blood glucose increased [Recovered/Resolved]
  - Muscle spasms [Recovered/Resolved]
  - Gastric infection [Unknown]
